FAERS Safety Report 7050372-7 (Version None)
Quarter: 2010Q4

REPORT INFORMATION
  Report Type: 
  Country: None (occurrence: None)
  Receive Date: 20101018
  Receipt Date: 20101006
  Transmission Date: 20110411
  Serious: Yes (Other)
  Sender: FDA-Public Use
  Company Number: BE-ELI_LILLY_AND_COMPANY-BE200912005841

PATIENT
  Sex: Female

DRUGS (2)
  1. FORTEO [Suspect]
     Indication: OSTEOPOROSIS
     Dates: start: 20090829
  2. INUVAIR [Concomitant]

REACTIONS (5)
  - ASTHENIA [None]
  - BLADDER OPERATION [None]
  - DYSPNOEA [None]
  - PAIN IN EXTREMITY [None]
  - UTERINE OPERATION [None]
